FAERS Safety Report 17688044 (Version 1)
Quarter: 2020Q2

REPORT INFORMATION
  Report Type: Report from Study
  Country: IN (occurrence: IN)
  Receive Date: 20200421
  Receipt Date: 20200421
  Transmission Date: 20200714
  Serious: Yes (Death)
  Sender: FDA-Public Use
  Company Number: NVSC2020IN105944

PATIENT
  Age: 68 Year
  Sex: Male
  Weight: 46 kg

DRUGS (1)
  1. VYMADA [Suspect]
     Active Substance: SACUBITRIL\VALSARTAN
     Indication: CARDIAC FAILURE
     Dosage: UNK
     Route: 048

REACTIONS (3)
  - Dyspnoea [Fatal]
  - Abdominal distension [Fatal]
  - Asthenia [Fatal]

NARRATIVE: CASE EVENT DATE: 20190516
